FAERS Safety Report 10041349 (Version 1)
Quarter: 2014Q1

REPORT INFORMATION
  Report Type: Spontaneous
  Country: AU (occurrence: None)
  Receive Date: 20140325
  Receipt Date: 20140325
  Transmission Date: 20141002
  Serious: Yes (Other)
  Sender: FDA-Public Use
  Company Number: 2013000562

PATIENT
  Age: 76 Year
  Sex: Male
  Weight: 86 kg

DRUGS (11)
  1. ACEON (PERINDOPRIL ERBUMINE) TABLET, 2MG [Suspect]
     Indication: PRODUCT USED FOR UNKNOWN INDICATION
     Route: 048
     Dates: start: 2000
  2. VIOXX [Suspect]
     Indication: PRODUCT USED FOR UNKNOWN INDICATION
     Route: 048
     Dates: start: 200112, end: 20021023
  3. LASIX (FUROSEMIDE) [Suspect]
     Indication: PRODUCT USED FOR UNKNOWN INDICATION
     Route: 048
     Dates: start: 2000
  4. LANOXIN (DIGOXIN) [Concomitant]
  5. MAREVAN (WARFARIN SODIUM) [Concomitant]
  6. LIPITOR (ATORVASTATIN CALCIUM) [Concomitant]
  7. PANAFCORTELONE (PREDNISOLONE) [Concomitant]
  8. LOSEC (OMEPRAZOLE) [Concomitant]
  9. NEURONTIN (GABAPENTIN) [Concomitant]
  10. HUMALOG (INSULIN LISPRO) [Concomitant]
  11. IMDUR (ISOSORBIDE MONONITRATE) [Concomitant]

REACTIONS (3)
  - Dehydration [None]
  - Azotaemia [None]
  - Renal failure acute [None]
